FAERS Safety Report 8287258-6 (Version None)
Quarter: 2012Q2

REPORT INFORMATION
  Report Type: 
  Country: None (occurrence: None)
  Receive Date: 20120416
  Receipt Date: 20120416
  Transmission Date: 20120825
  Serious: Yes (Other)
  Sender: FDA-Public Use
  Company Number: None

PATIENT
  Age: 53 Year
  Sex: Male
  Weight: 111.13 kg

DRUGS (1)
  1. VIIBRYD [Suspect]
     Indication: DEPRESSION
     Dosage: 40MG
     Route: 048
     Dates: start: 20110809, end: 20120413

REACTIONS (10)
  - SLEEP TERROR [None]
  - PARAESTHESIA [None]
  - MUSCLE TWITCHING [None]
  - MOVEMENT DISORDER [None]
  - FEELING ABNORMAL [None]
  - ABNORMAL DREAMS [None]
  - MUSCLE SPASMS [None]
  - HALLUCINATION [None]
  - MIDDLE INSOMNIA [None]
  - AURA [None]
